FAERS Safety Report 7451381-6 (Version None)
Quarter: 2011Q2

REPORT INFORMATION
  Report Type: 
  Country: None (occurrence: None)
  Receive Date: 20110422
  Receipt Date: 20110411
  Transmission Date: 20111010
  Serious: Yes (Hospitalization, Other)
  Sender: FDA-Public Use
  Company Number: 027954

PATIENT
  Age: 58 Year
  Sex: Female

DRUGS (3)
  1. CIMZIA [Suspect]
     Indication: RHEUMATOID ARTHRITIS
     Dosage: SUBCUTANEOUS, 2 INECTIONS SUBCUTANEOUS, 2 INJECTIONS SUBCUTANEOUS
     Route: 058
     Dates: start: 20110128
  2. CIMZIA [Suspect]
     Indication: RHEUMATOID ARTHRITIS
     Dosage: SUBCUTANEOUS, 2 INECTIONS SUBCUTANEOUS, 2 INJECTIONS SUBCUTANEOUS
     Route: 058
     Dates: start: 20110209, end: 20110101
  3. METHOTREXATE [Concomitant]

REACTIONS (2)
  - CELLULITIS ORBITAL [None]
  - CELLULITIS STAPHYLOCOCCAL [None]
